FAERS Safety Report 9540752 (Version 1)
Quarter: 2013Q3

REPORT INFORMATION
  Report Type: Spontaneous
  Country: BE (occurrence: BE)
  Receive Date: 20130920
  Receipt Date: 20130920
  Transmission Date: 20140515
  Serious: Yes (Other)
  Sender: FDA-Public Use
  Company Number: BE-TAKEDA-2013TUS000755

PATIENT
  Age: 45 Year
  Sex: Male

DRUGS (4)
  1. ADENURIC [Suspect]
     Dosage: 80 MG, QD
     Route: 065
     Dates: start: 20130704, end: 20130719
  2. ADENURIC [Suspect]
     Dosage: 80 MG, QD
     Dates: start: 201307, end: 20130730
  3. COLCHICINE [Concomitant]
     Indication: GOUT
     Dosage: 0.5 MG, UNK
     Dates: start: 20130705
  4. PARACETAMOL [Concomitant]
     Indication: PAIN
     Dosage: 1 G, QID
     Dates: start: 20130711

REACTIONS (4)
  - Pyrexia [Unknown]
  - Haematochezia [Unknown]
  - Blood urine present [Unknown]
  - Pruritus [Unknown]
